FAERS Safety Report 21527664 (Version 2)
Quarter: 2023Q1

REPORT INFORMATION
  Report Type: Spontaneous
  Country: US (occurrence: US)
  Receive Date: 20221031
  Receipt Date: 20230207
  Transmission Date: 20230418
  Serious: No
  Sender: FDA-Public Use
  Company Number: US-BRISTOL-MYERS SQUIBB COMPANY-2022-127236

PATIENT
  Age: 70 Year
  Sex: Male

DRUGS (2)
  1. OPDIVO [Suspect]
     Active Substance: NIVOLUMAB
     Indication: Lung carcinoma cell type unspecified stage I
     Dosage: DOSE : YERVOY: 49MG OPDIVO: 240MG;     FREQ : OPDIVO: ^EVERY 14 DAYS^?YERVOY: ^EVERY 42 DAYS^
     Route: 042
  2. YERVOY [Suspect]
     Active Substance: IPILIMUMAB
     Indication: Lung carcinoma cell type unspecified stage I
     Route: 042

REACTIONS (1)
  - Off label use [Unknown]
